FAERS Safety Report 7809324 (Version 4)
Quarter: 2013Q2

REPORT INFORMATION
  Report Type: Spontaneous
  Country: SE (occurrence: SE)
  Receive Date: 20110211
  Receipt Date: 20130513
  Transmission Date: 20140414
  Serious: Yes (Hospitalization)
  Sender: FDA-Public Use
  Company Number: SE-JNJFOC-20110200997

PATIENT
  Age: 36 Year
  Sex: Female

DRUGS (3)
  1. REMICADE [Suspect]
     Indication: SPONDYLITIS
     Route: 042
     Dates: start: 20100122, end: 20101012
  2. ROACTEMRA [Suspect]
     Indication: SPONDYLITIS
     Route: 042
     Dates: start: 20101012, end: 20101116
  3. METHOTREXATE [Concomitant]
     Route: 065
     Dates: start: 20100728

REACTIONS (3)
  - Peritonitis [Not Recovered/Not Resolved]
  - Abscess [Not Recovered/Not Resolved]
  - Drug ineffective [Unknown]
